FAERS Safety Report 9085641 (Version 1)
Quarter: 2013Q1

REPORT INFORMATION
  Report Type: Report from Study
  Country: US (occurrence: US)
  Receive Date: 20130131
  Receipt Date: 20130131
  Transmission Date: 20140127
  Serious: No
  Sender: FDA-Public Use
  Company Number: US-ABBOTT-12P-163-1004880-00

PATIENT
  Age: 66 Year
  Sex: Female

DRUGS (4)
  1. HUMIRA [Suspect]
     Indication: ANKYLOSING SPONDYLITIS
     Dates: start: 20120901
  2. TOPROLOL [Concomitant]
     Indication: HYPERTENSION
  3. ENALAPRIL [Concomitant]
     Indication: BLOOD PRESSURE
  4. SIMVASTATIN [Concomitant]
     Indication: BLOOD CHOLESTEROL

REACTIONS (2)
  - Inappropriate schedule of drug administration [Recovering/Resolving]
  - Pain [Unknown]
